FAERS Safety Report 15785278 (Version 1)
Quarter: 2019Q1

REPORT INFORMATION
  Report Type: Spontaneous
  Country: US (occurrence: US)
  Receive Date: 20190103
  Receipt Date: 20190103
  Transmission Date: 20190417
  Serious: No
  Sender: FDA-Public Use
  Company Number: US-FERRINGPH-2018FE00209

PATIENT
  Age: 41 Year
  Sex: Female

DRUGS (1)
  1. TRANEXAMIC ACID PRASCO [Suspect]
     Active Substance: TRANEXAMIC ACID
     Indication: MENORRHAGIA
     Dosage: 650 MG, 4 TIMES DAILY FOR 5 DAYS
     Route: 048
     Dates: start: 201801

REACTIONS (4)
  - Rash [Not Recovered/Not Resolved]
  - Vomiting [Not Recovered/Not Resolved]
  - Underdose [Not Recovered/Not Resolved]
  - Off label use [Not Recovered/Not Resolved]

NARRATIVE: CASE EVENT DATE: 201801
